FAERS Safety Report 4938787-1 (Version None)
Quarter: 2006Q1

REPORT INFORMATION
  Report Type: 
  Country: None (occurrence: None)
  Receive Date: 20060306
  Receipt Date: 20060215
  Transmission Date: 20060701
  Serious: Yes (Other)
  Sender: FDA-Public Use
  Company Number: 2005145554

PATIENT
  Age: 76 Year
  Sex: Male

DRUGS (5)
  1. MACUGEN [Suspect]
     Indication: MACULAR DEGENERATION
     Dosage: 0.3 MG (0.3 MG, 1 IN 6 WK), INTRAVITREOUS
     Dates: start: 20050623
  2. ALTACE [Concomitant]
  3. AVANDAMET (METFORMIN HYDROCHLORIDE, ROSIGLITAZONE) [Concomitant]
  4. VERAPAMIL [Concomitant]
  5. AMARYL [Concomitant]

REACTIONS (8)
  - BLINDNESS UNILATERAL [None]
  - BLOOD PRESSURE INCREASED [None]
  - CHOROIDAL HAEMORRHAGE [None]
  - EYE PAIN [None]
  - FACIAL PAIN [None]
  - GLAUCOMA [None]
  - NAUSEA [None]
  - VISUAL ACUITY REDUCED [None]
